FAERS Safety Report 5975523-4 (Version None)
Quarter: 2008Q4

REPORT INFORMATION
  Report Type: 
  Country: None (occurrence: None)
  Receive Date: 20081202
  Receipt Date: 20080512
  Transmission Date: 20090506
  Serious: No
  Sender: FDA-Public Use
  Company Number: A0727469A

PATIENT
  Age: 76 Year
  Sex: Female

DRUGS (7)
  1. AMOXICILLIN + CLAVULANATE POTASSIUM [Suspect]
     Route: 065
     Dates: end: 20080506
  2. COREG CR [Suspect]
     Dosage: 20MG PER DAY
     Route: 048
     Dates: start: 20080201
  3. ASPIRIN [Concomitant]
  4. ISOSORBIDE [Concomitant]
  5. LOTREL [Concomitant]
  6. FUROSEMIDE [Concomitant]
  7. XANAX [Concomitant]

REACTIONS (1)
  - RASH PRURITIC [None]
